FAERS Safety Report 16630488 (Version 1)
Quarter: 2019Q3

REPORT INFORMATION
  Report Type: Spontaneous
  Country: FR (occurrence: BE)
  Receive Date: 20190725
  Receipt Date: 20190725
  Transmission Date: 20191004
  Serious: Yes (Other)
  Sender: FDA-Public Use
  Company Number: FR-ROCHE-2358858

PATIENT
  Age: 79 Year
  Sex: Male

DRUGS (1)
  1. ZELBORAF [Suspect]
     Active Substance: VEMURAFENIB
     Indication: HISTIOCYTOSIS
     Dosage: 3CP
     Route: 048
     Dates: start: 201705

REACTIONS (1)
  - Pulmonary granuloma [Unknown]

NARRATIVE: CASE EVENT DATE: 2018
